FAERS Safety Report 15485117 (Version 2)
Quarter: 2018Q4

REPORT INFORMATION
  Report Type: Report from Study
  Country: US (occurrence: US)
  Receive Date: 20181010
  Receipt Date: 20181031
  Transmission Date: 20190205
  Serious: Yes (Death, Hospitalization, Other)
  Sender: FDA-Public Use
  Company Number: US-ACTELION-A-US2017-160495

PATIENT
  Age: 72 Year
  Sex: Female
  Weight: 64.4 kg

DRUGS (7)
  1. UPTRAVI [Suspect]
     Active Substance: SELEXIPAG
     Dosage: 1200 MCG, BID
     Route: 048
  2. REMODULIN [Concomitant]
     Active Substance: TREPROSTINIL
     Route: 042
  3. UPTRAVI [Suspect]
     Active Substance: SELEXIPAG
     Indication: PULMONARY HYPERTENSION
     Dosage: 1400 MCG, BID
     Route: 048
  4. OXYGEN. [Concomitant]
     Active Substance: OXYGEN
  5. UPTRAVI [Suspect]
     Active Substance: SELEXIPAG
     Dosage: 600 MCG, BID
     Route: 048
  6. ADEMPAS [Concomitant]
     Active Substance: RIOCIGUAT
  7. OPSUMIT [Suspect]
     Active Substance: MACITENTAN
     Indication: PULMONARY HYPERTENSION
     Dosage: 10 MG, QD
     Route: 048

REACTIONS (17)
  - Oropharyngeal pain [Unknown]
  - Malaise [Unknown]
  - Upper-airway cough syndrome [Unknown]
  - Myalgia [Unknown]
  - Neck pain [Not Recovered/Not Resolved]
  - Oxygen saturation decreased [Unknown]
  - Pulmonary oedema [Recovering/Resolving]
  - Fatigue [Unknown]
  - Oxygen consumption decreased [Unknown]
  - Death [Fatal]
  - Headache [Unknown]
  - Diarrhoea [Unknown]
  - Oedema peripheral [Unknown]
  - Arthralgia [Not Recovered/Not Resolved]
  - Right ventricular failure [Unknown]
  - Therapy change [Unknown]
  - Eustachian tube disorder [Unknown]

NARRATIVE: CASE EVENT DATE: 201810
